FAERS Safety Report 21489517 (Version 2)
Quarter: 2022Q4

REPORT INFORMATION
  Report Type: Report from Study
  Country: US (occurrence: US)
  Receive Date: 20221021
  Receipt Date: 20221125
  Transmission Date: 20230113
  Serious: No
  Sender: FDA-Public Use
  Company Number: US-ABBVIE-4136143

PATIENT
  Sex: Male

DRUGS (2)
  1. IBRUTINIB [Suspect]
     Active Substance: IBRUTINIB
     Indication: Chronic lymphocytic leukaemia
     Route: 048
  2. IBRUTINIB [Suspect]
     Active Substance: IBRUTINIB
     Indication: Chronic lymphocytic leukaemia
     Route: 048

REACTIONS (10)
  - Atrial fibrillation [Unknown]
  - Nightmare [Unknown]
  - Joint injury [Unknown]
  - Head injury [Unknown]
  - Headache [Unknown]
  - Fall [Unknown]
  - Joint swelling [Unknown]
  - White blood cell count increased [Unknown]
  - Aortic dilatation [Unknown]
  - Blood pressure increased [Unknown]
